FAERS Safety Report 9613610 (Version 2)
Quarter: 2013Q4

REPORT INFORMATION
  Report Type: Spontaneous
  Country: CO (occurrence: CO)
  Receive Date: 20131010
  Receipt Date: 20131010
  Transmission Date: 20140711
  Serious: Yes (Other)
  Sender: FDA-Public Use
  Company Number: CO-VERTEX PHARMACEUTICALS INC-2013-009316

PATIENT
  Age: 40 Year
  Sex: Female

DRUGS (4)
  1. INCIVO [Suspect]
     Indication: HEPATITIS C
     Dosage: 750 MG, TID (2 X 375 MG)
     Route: 048
     Dates: start: 20130722
  2. INTERFERON ALFA 2B [Suspect]
     Indication: HEPATITIS C
     Dosage: 100 ?G, QW AMPOULES
     Route: 058
  3. INTERFERON ALFA 2B [Suspect]
     Dosage: 160 ?G, UNK AMPOULES (EVERY 8 DAYS)
     Route: 058
     Dates: start: 20130722
  4. RIBAVIRIN [Suspect]
     Indication: HEPATITIS C
     Dosage: 200 MG, (5 TIMES A DAY)
     Route: 048
     Dates: start: 20130722

REACTIONS (5)
  - Leukopenia [Recovered/Resolved]
  - Headache [Recovered/Resolved]
  - Early satiety [Not Recovered/Not Resolved]
  - Nausea [Unknown]
  - Vomiting [Recovered/Resolved]
